FAERS Safety Report 13330443 (Version 1)
Quarter: 2017Q1

REPORT INFORMATION
  Report Type: Report from Study
  Country: TW (occurrence: TW)
  Receive Date: 20170313
  Receipt Date: 20170313
  Transmission Date: 20170428
  Serious: Yes (Other)
  Sender: FDA-Public Use
  Company Number: TW-MYLANLABS-2017M1015020

PATIENT

DRUGS (1)
  1. TRIAMCINOLONE [Suspect]
     Active Substance: TRIAMCINOLONE
     Indication: POLYPOIDAL CHOROIDAL VASCULOPATHY
     Dosage: 1 MG/0.025 ML, RECEIVED 14 CYCLES
     Route: 047

REACTIONS (2)
  - Intraocular pressure increased [Unknown]
  - Cataract [Unknown]
